FAERS Safety Report 6990821-3 (Version None)
Quarter: 2010Q3

REPORT INFORMATION
  Report Type: 
  Country: None (occurrence: None)
  Receive Date: 20100916
  Receipt Date: 20100831
  Transmission Date: 20110219
  Serious: Yes (Other)
  Sender: FDA-Public Use
  Company Number: DK-PFIZER INC-2010084378

PATIENT
  Sex: Female

DRUGS (2)
  1. LYRICA [Suspect]
     Indication: ANXIETY
     Dosage: 150 MG, 2X/DAY
     Dates: start: 20080612
  2. CIPRAMIL [Concomitant]
     Indication: DEPRESSION
     Dosage: UNK
     Dates: start: 20070101

REACTIONS (2)
  - DRUG DEPENDENCE [None]
  - SUICIDE ATTEMPT [None]
